FAERS Safety Report 6862057-8 (Version None)
Quarter: 2010Q3

REPORT INFORMATION
  Report Type: 
  Country: None (occurrence: None)
  Receive Date: 20100721
  Receipt Date: 20100709
  Transmission Date: 20110219
  Serious: Yes (Life-Threatening, Hospitalization, Disabling)
  Sender: FDA-Public Use
  Company Number: DE-JNJFOC-20100703143

PATIENT
  Age: 59 Year
  Sex: Female

DRUGS (13)
  1. REMICADE [Suspect]
     Indication: RHEUMATOID ARTHRITIS
     Route: 042
  2. RITUXIMAB [Concomitant]
     Indication: RHEUMATOID ARTHRITIS
  3. ABATACEPT [Concomitant]
     Indication: RHEUMATOID ARTHRITIS
  4. METHOTREXATE [Concomitant]
     Indication: RHEUMATOID ARTHRITIS
  5. METHOTREXATE [Concomitant]
  6. METHOTREXATE [Concomitant]
  7. METHOTREXATE [Concomitant]
  8. PREDNISOLONE [Concomitant]
  9. HYDROMORPHONE HCL [Concomitant]
  10. DHC [Concomitant]
  11. AMITRIPTYLINE HCL [Concomitant]
  12. NOVONORM [Concomitant]
  13. METOHEXAL [Concomitant]

REACTIONS (3)
  - GASTRIC CANCER [None]
  - GASTROINTESTINAL STENOSIS [None]
  - PNEUMONIA [None]
